FAERS Safety Report 23230476 (Version 3)
Quarter: 2024Q1

REPORT INFORMATION
  Report Type: Report from Study
  Country: GB (occurrence: GB)
  Receive Date: 20231127
  Receipt Date: 20240105
  Transmission Date: 20240409
  Serious: Yes (Other)
  Sender: FDA-Public Use
  Company Number: GB-SANDOZ-SDZ2023GB058723

PATIENT
  Sex: Female

DRUGS (2)
  1. HYRIMOZ [Suspect]
     Active Substance: ADALIMUMAB-ADAZ
     Indication: Ankylosing spondylitis
     Dosage: 40 MG, Q2W
     Route: 058
     Dates: start: 20231122
  2. HYRIMOZ [Suspect]
     Active Substance: ADALIMUMAB-ADAZ
     Dosage: 40 MG EOW
     Route: 058

REACTIONS (7)
  - Urinary retention [Not Recovered/Not Resolved]
  - Cystitis [Not Recovered/Not Resolved]
  - Adverse reaction [Unknown]
  - Sinus disorder [Unknown]
  - Brain fog [Unknown]
  - Abdominal pain upper [Unknown]
  - Dyspnoea [Unknown]
